FAERS Safety Report 4526764-4 (Version None)
Quarter: 2004Q4

REPORT INFORMATION
  Report Type: 
  Country: None (occurrence: None)
  Receive Date: 20041213
  Receipt Date: 20041201
  Transmission Date: 20050328
  Serious: Yes (Other)
  Sender: FDA-Public Use
  Company Number: HQWYE739202DEC04

PATIENT
  Age: 57 Year
  Sex: Female

DRUGS (1)
  1. EFFEXOR XR [Suspect]
     Dosage: CURRENTLY TAPERING, NOW ON 25 MG DAILY, ORAL
     Route: 048

REACTIONS (2)
  - RETINAL HAEMORRHAGE [None]
  - RETINAL TEAR [None]
